FAERS Safety Report 25152646 (Version 4)
Quarter: 2025Q2

REPORT INFORMATION
  Report Type: Report from Study
  Country: US (occurrence: US)
  Receive Date: 20250402
  Receipt Date: 20250514
  Transmission Date: 20250717
  Serious: Yes (Other)
  Sender: BIOGEN
  Company Number: US-BIOGEN-2025BI01298750

PATIENT
  Sex: Female

DRUGS (15)
  1. VUMERITY [Suspect]
     Active Substance: DIROXIMEL FUMARATE
     Indication: Multiple sclerosis
     Dosage: START DATE ALSO REPORTED AS 24-JAN-2025
     Route: 050
     Dates: start: 20250126, end: 20250201
  2. VUMERITY [Suspect]
     Active Substance: DIROXIMEL FUMARATE
     Route: 050
     Dates: start: 20250202
  3. VUMERITY [Suspect]
     Active Substance: DIROXIMEL FUMARATE
     Route: 050
  4. VUMERITY [Suspect]
     Active Substance: DIROXIMEL FUMARATE
     Route: 050
     Dates: start: 20250124, end: 20250425
  5. VUMERITY [Suspect]
     Active Substance: DIROXIMEL FUMARATE
     Route: 050
     Dates: start: 20250428
  6. AUVELITY [Concomitant]
     Active Substance: BUPROPION HYDROCHLORIDE\DEXTROMETHORPHAN HYDROBROMIDE
     Indication: Product used for unknown indication
     Route: 050
  7. CYCLOBENZAPRINE [Concomitant]
     Active Substance: CYCLOBENZAPRINE
     Indication: Product used for unknown indication
     Route: 050
  8. DULOXETINE HYDROCHLORIDE [Concomitant]
     Active Substance: DULOXETINE HYDROCHLORIDE
     Indication: Product used for unknown indication
     Route: 050
  9. GABAPENTIN [Concomitant]
     Active Substance: GABAPENTIN
     Indication: Product used for unknown indication
     Route: 050
  10. GABAPENTIN [Concomitant]
     Active Substance: GABAPENTIN
     Route: 050
  11. PANTOPRAZOLE [Concomitant]
     Active Substance: PANTOPRAZOLE
     Indication: Product used for unknown indication
     Route: 050
  12. REXULTI [Concomitant]
     Active Substance: BREXPIPRAZOLE
     Indication: Product used for unknown indication
     Route: 050
  13. SERTRALINE H [Concomitant]
     Indication: Product used for unknown indication
     Route: 050
  14. WARFARIN SODIUM [Concomitant]
     Active Substance: WARFARIN SODIUM
     Indication: Product used for unknown indication
     Route: 050
  15. WARFARIN SODIUM [Concomitant]
     Active Substance: WARFARIN SODIUM
     Route: 050

REACTIONS (32)
  - Suicidal ideation [Not Recovered/Not Resolved]
  - Self-injurious ideation [Not Recovered/Not Resolved]
  - Product dose omission issue [Not Recovered/Not Resolved]
  - Extra dose administered [Not Recovered/Not Resolved]
  - Tremor [Not Recovered/Not Resolved]
  - Dyskinesia [Not Recovered/Not Resolved]
  - Musculoskeletal disorder [Not Recovered/Not Resolved]
  - Motor dysfunction [Not Recovered/Not Resolved]
  - Headache [Recovered/Resolved]
  - Gastrointestinal pain [Recovered/Resolved]
  - Gait disturbance [Not Recovered/Not Resolved]
  - Hypoaesthesia [Not Recovered/Not Resolved]
  - Speech disorder [Not Recovered/Not Resolved]
  - Paraesthesia [Not Recovered/Not Resolved]
  - Anal incontinence [Not Recovered/Not Resolved]
  - Aphasia [Not Recovered/Not Resolved]
  - Disturbance in attention [Not Recovered/Not Resolved]
  - Balance disorder [Not Recovered/Not Resolved]
  - Arthritis [Not Recovered/Not Resolved]
  - Depressed mood [Not Recovered/Not Resolved]
  - Fatigue [Not Recovered/Not Resolved]
  - Asthenia [Not Recovered/Not Resolved]
  - Decreased appetite [Not Recovered/Not Resolved]
  - Psychomotor hyperactivity [Not Recovered/Not Resolved]
  - Restlessness [Not Recovered/Not Resolved]
  - Astigmatism [Not Recovered/Not Resolved]
  - Reading disorder [Not Recovered/Not Resolved]
  - Dysstasia [Not Recovered/Not Resolved]
  - Hypersomnia [Recovered/Resolved]
  - Flushing [Recovered/Resolved]
  - Abdominal pain upper [Recovered/Resolved]
  - Diarrhoea [Not Recovered/Not Resolved]

NARRATIVE: CASE EVENT DATE: 20250101
